FAERS Safety Report 4684171-8 (Version None)
Quarter: 2005Q2

REPORT INFORMATION
  Report Type: 
  Country: None (occurrence: None)
  Receive Date: 20050607
  Receipt Date: 20041203
  Transmission Date: 20051028
  Serious: Yes (Other)
  Sender: FDA-Public Use
  Company Number: GB-GLAXOSMITHKLINE-B0359696A

PATIENT
  Sex: Male

DRUGS (6)
  1. PAROXETINE HCL [Suspect]
     Route: 065
  2. CITALOPRAM [Concomitant]
     Dosage: 20MG UNKNOWN
     Route: 065
  3. ZOPICLONE [Concomitant]
     Dosage: 7.5MG AT NIGHT
     Route: 065
  4. SERTRALINE HCL [Concomitant]
     Dosage: 50MG PER DAY
     Route: 065
  5. ZOLPIDEM [Concomitant]
     Route: 065
  6. VENLAFAXINE HCL [Concomitant]
     Route: 065

REACTIONS (10)
  - AGGRESSION [None]
  - AGITATION [None]
  - ANXIETY [None]
  - COMPLETED SUICIDE [None]
  - DIZZINESS [None]
  - FEELING OF DESPAIR [None]
  - NERVOUSNESS [None]
  - OVERDOSE [None]
  - PANIC ATTACK [None]
  - VISION BLURRED [None]
